FAERS Safety Report 8006304-8 (Version None)
Quarter: 2011Q4

REPORT INFORMATION
  Report Type: 
  Country: None (occurrence: None)
  Receive Date: 20111226
  Receipt Date: 20111219
  Transmission Date: 20120403
  Serious: Yes (Hospitalization)
  Sender: FDA-Public Use
  Company Number: PHEH2011US011115

PATIENT
  Sex: Male
  Weight: 82.993 kg

DRUGS (3)
  1. EXJADE [Suspect]
     Indication: IRON OVERLOAD
  2. REVLIMID [Suspect]
     Dosage: UNK
     Route: 048
  3. EXJADE [Suspect]
     Indication: HAEMOCHROMATOSIS
     Dosage: 1500 MG, DAILY
     Route: 048
     Dates: start: 20111006

REACTIONS (2)
  - CARDIAC FAILURE CONGESTIVE [None]
  - DYSPNOEA [None]
